FAERS Safety Report 10272761 (Version 1)
Quarter: 2014Q2

REPORT INFORMATION
  Report Type: Spontaneous
  Country: US (occurrence: None)
  Receive Date: 20140627
  Receipt Date: 20140627
  Transmission Date: 20141212
  Serious: Yes (Hospitalization)
  Sender: FDA-Public Use
  Company Number: None

PATIENT
  Age: 88 Year
  Sex: Female

DRUGS (2)
  1. CLARITHROMYCIN 500MG [Suspect]
     Indication: HELICOBACTER INFECTION
     Route: 048
  2. ASPIRIN [Concomitant]

REACTIONS (6)
  - Drug interaction [None]
  - Haematemesis [None]
  - Abdominal pain [None]
  - Gastrointestinal haemorrhage [None]
  - Hypokalaemia [None]
  - Mallory-Weiss syndrome [None]
